FAERS Safety Report 21570296 (Version 3)
Quarter: 2022Q4

REPORT INFORMATION
  Report Type: Spontaneous
  Country: US (occurrence: US)
  Receive Date: 20221109
  Receipt Date: 20221214
  Transmission Date: 20230113
  Serious: No
  Sender: FDA-Public Use
  Company Number: US-PFIZER INC-202201269718

PATIENT
  Age: 12 Year
  Sex: Female
  Weight: 42.18 kg

DRUGS (1)
  1. GENOTROPIN [Suspect]
     Active Substance: SOMATROPIN
     Indication: Growth hormone deficiency
     Dosage: 12 MG
     Dates: end: 20221024

REACTIONS (3)
  - Drug dose omission by device [Not Recovered/Not Resolved]
  - Device issue [Unknown]
  - Device physical property issue [Unknown]

NARRATIVE: CASE EVENT DATE: 20221024
